FAERS Safety Report 9028656 (Version 1)
Quarter: 2013Q1

REPORT INFORMATION
  Report Type: Spontaneous
  Country: US (occurrence: US)
  Receive Date: 20130124
  Receipt Date: 20130124
  Transmission Date: 20140127
  Serious: Yes (Other)
  Sender: FDA-Public Use
  Company Number: PHEH2013US001959

PATIENT
  Age: 44 Year
  Sex: Female

DRUGS (3)
  1. AFINITOR [Suspect]
     Indication: TUBEROUS SCLEROSIS
     Dosage: 10 MG, QD
     Route: 048
     Dates: start: 20110823
  2. KEPPRA [Concomitant]
  3. CARNITINE [Concomitant]

REACTIONS (2)
  - Sleep apnoea syndrome [Recovered/Resolved]
  - Convulsion [Recovered/Resolved]
